FAERS Safety Report 7099089-3 (Version None)
Quarter: 2010Q4

REPORT INFORMATION
  Report Type: 
  Country: None (occurrence: None)
  Receive Date: 20101112
  Receipt Date: 20101105
  Transmission Date: 20110411
  Serious: Yes (Death, Hospitalization)
  Sender: FDA-Public Use
  Company Number: A0873005A

PATIENT
  Age: 54 Year
  Sex: Female

DRUGS (2)
  1. TYKERB [Suspect]
     Dosage: 1250MG PER DAY
     Route: 048
     Dates: start: 20100614, end: 20100719
  2. XELODA [Suspect]
     Route: 048
     Dates: start: 20100614

REACTIONS (7)
  - BRAIN DEATH [None]
  - BRAIN INJURY [None]
  - CONVULSION [None]
  - DEATH [None]
  - IMPAIRED HEALING [None]
  - MENTAL STATUS CHANGES [None]
  - WOUND TREATMENT [None]
